APPROVED DRUG PRODUCT: PENICILLIN V POTASSIUM
Active Ingredient: PENICILLIN V POTASSIUM
Strength: EQ 250MG BASE
Dosage Form/Route: TABLET;ORAL
Application: A064071 | Product #001
Applicant: SANDOZ INC
Approved: Nov 30, 1995 | RLD: No | RS: No | Type: DISCN